FAERS Safety Report 7720363-9 (Version None)
Quarter: 2011Q3

REPORT INFORMATION
  Report Type: 
  Country: None (occurrence: None)
  Receive Date: 20110830
  Receipt Date: 20110830
  Transmission Date: 20111222
  Serious: Yes (Other)
  Sender: FDA-Public Use
  Company Number: None

PATIENT
  Age: 71 Year
  Sex: Male
  Weight: 73.4827 kg

DRUGS (1)
  1. NADOLOL AND BENDROFLUMETHAZIDE [Suspect]
     Indication: HYPERTENSION
     Dosage: CORZIDE 40/5 GENERIC 1 A DAY ORAL
     Route: 048
     Dates: start: 20110701

REACTIONS (3)
  - RASH [None]
  - DYSPNOEA [None]
  - PRURITUS [None]
